FAERS Safety Report 17533899 (Version 1)
Quarter: 2020Q1

REPORT INFORMATION
  Report Type: Spontaneous
  Country: GB (occurrence: GB)
  Receive Date: 20200312
  Receipt Date: 20200312
  Transmission Date: 20200409
  Serious: Yes (Hospitalization)
  Sender: FDA-Public Use
  Company Number: GB-ACCORD-175171

PATIENT
  Age: 83 Year
  Sex: Female
  Weight: 70 kg

DRUGS (12)
  1. ATORVASTATIN [Concomitant]
     Active Substance: ATORVASTATIN
     Dosage: TEATIME
  2. RAMIPRIL. [Suspect]
     Active Substance: RAMIPRIL
     Indication: RIGHT VENTRICULAR FAILURE
     Route: 048
     Dates: end: 20190823
  3. BISOPROLOL [Concomitant]
     Active Substance: BISOPROLOL
  4. CLOPIDOGREL [Concomitant]
     Active Substance: CLOPIDOGREL BISULFATE
     Dosage: TO STOP OCT 2019
  5. NITROFURANTOIN/NITROFURANTOIN SODIUM [Concomitant]
     Active Substance: NITROFURANTOIN
  6. GLICLAZIDE [Concomitant]
     Active Substance: GLICLAZIDE
  7. RANITIDINE. [Concomitant]
     Active Substance: RANITIDINE
  8. APIXABAN [Concomitant]
     Active Substance: APIXABAN
  9. GAVISCON ADVANCE [Concomitant]
     Active Substance: POTASSIUM BICARBONATE\SODIUM ALGINATE
  10. LEVOTHYROXINE. [Concomitant]
     Active Substance: LEVOTHYROXINE
     Dosage: OM
  11. BETAHISTINE [Concomitant]
     Active Substance: BETAHISTINE
  12. METFORMIN [Concomitant]
     Active Substance: METFORMIN HYDROCHLORIDE

REACTIONS (7)
  - Inappropriate antidiuretic hormone secretion [Unknown]
  - Hyponatraemia [Recovered/Resolved]
  - Arthralgia [Unknown]
  - Oedema peripheral [Unknown]
  - Osteoarthritis [Unknown]
  - Right ventricular failure [Unknown]
  - Nodule [Unknown]

NARRATIVE: CASE EVENT DATE: 20190823
